FAERS Safety Report 19296702 (Version 7)
Quarter: 2021Q3

REPORT INFORMATION
  Report Type: Spontaneous
  Country: GB (occurrence: GB)
  Receive Date: 20210524
  Receipt Date: 20210806
  Transmission Date: 20211014
  Serious: Yes (Death, Hospitalization, Other)
  Sender: FDA-Public Use
  Company Number: GB-BAXTER-2021BAX011732

PATIENT
  Age: 5 Year
  Sex: Male

DRUGS (6)
  1. CYCLOPHOSPHAMIDE INJECTION 1G [Suspect]
     Active Substance: CYCLOPHOSPHAMIDE
     Indication: NEOPLASM MALIGNANT
     Dosage: TWO ROUNDS OF CHEMOTHERAPY
     Route: 051
     Dates: start: 20191101, end: 20191216
  2. VINCRISTINE SULFATE. [Suspect]
     Active Substance: VINCRISTINE SULFATE
     Indication: BRAIN CANCER METASTATIC
     Dosage: TWO ROUNDS OF CHEMOTHERAPY
     Route: 051
     Dates: start: 20191101, end: 20191216
  3. VEPSID [Suspect]
     Active Substance: ETOPOSIDE
     Indication: NEOPLASM MALIGNANT
     Dosage: TWO ROUNDS OF CHEMOTHERAPY
     Route: 051
     Dates: start: 20191101, end: 20191216
  4. CISPLATIN. [Suspect]
     Active Substance: CISPLATIN
     Indication: BRAIN CANCER METASTATIC
     Dosage: TWO ROUNDS OF CHEMOTHERAPY
     Route: 051
     Dates: start: 20191101, end: 20191216
  5. CARBOPLATIN. [Concomitant]
     Active Substance: CARBOPLATIN
     Indication: PRODUCT USED FOR UNKNOWN INDICATION
     Route: 065
  6. THIOTEPA. [Concomitant]
     Active Substance: THIOTEPA
     Indication: PRODUCT USED FOR UNKNOWN INDICATION
     Route: 065

REACTIONS (19)
  - Haemorrhage intracranial [Fatal]
  - Seizure [Unknown]
  - Rectal prolapse [Unknown]
  - Vomiting [Unknown]
  - Death [Fatal]
  - Drug ineffective [Unknown]
  - Feeding disorder [Unknown]
  - Headache [Unknown]
  - Illness [Unknown]
  - Pancytopenia [Unknown]
  - Malignant neoplasm progression [Unknown]
  - Pain [Unknown]
  - Diarrhoea [Unknown]
  - Abdominal discomfort [Fatal]
  - Acute kidney injury [Unknown]
  - Neutropenic sepsis [Unknown]
  - Intestinal prolapse [Fatal]
  - Mouth ulceration [Unknown]
  - Hydrocephalus [Unknown]

NARRATIVE: CASE EVENT DATE: 2019
